FAERS Safety Report 7609829-X (Version None)
Quarter: 2011Q3

REPORT INFORMATION
  Report Type: 
  Country: None (occurrence: None)
  Receive Date: 20110714
  Receipt Date: 20110701
  Transmission Date: 20111222
  Serious: Yes (Other)
  Sender: FDA-Public Use
  Company Number: PL-MYLANLABS-2011S1014011

PATIENT
  Age: 12 Year
  Sex: Female

DRUGS (4)
  1. CLARITHROMYCIN [Suspect]
     Indication: BRONCHITIS
     Dosage: STANDARD DOSES
     Route: 065
  2. CYCLOSPORINE [Interacting]
     Indication: NEPHROTIC SYNDROME
     Route: 065
  3. PREDNISONE [Concomitant]
     Indication: NEPHROTIC SYNDROME
     Route: 065
  4. AZATHIOPRINE [Concomitant]
     Indication: NEPHROTIC SYNDROME
     Route: 065

REACTIONS (2)
  - DRUG INTERACTION [None]
  - RENAL FAILURE ACUTE [None]
